FAERS Safety Report 6313924-5 (Version None)
Quarter: 2009Q3

REPORT INFORMATION
  Report Type: 
  Country: None (occurrence: None)
  Receive Date: 20090818
  Receipt Date: 20090806
  Transmission Date: 20100115
  Serious: Yes (Hospitalization)
  Sender: FDA-Public Use
  Company Number: PHHY2009GB32134

PATIENT
  Sex: Male

DRUGS (9)
  1. CLOZARIL [Suspect]
     Indication: SCHIZOPHRENIA
     Dosage: UNK
     Route: 048
     Dates: start: 20040831, end: 20090716
  2. CLOZARIL [Suspect]
     Indication: SCHIZOAFFECTIVE DISORDER
     Dosage: 100 MG, BID
     Route: 048
  3. LORAZEPAM [Concomitant]
     Dosage: 1 MG, QDS
  4. SENNA [Concomitant]
  5. LACTULOSE [Concomitant]
  6. HYOSCINE [Concomitant]
     Dosage: 900 UG, UNK
  7. AMANTADINE HCL [Concomitant]
     Dosage: 200 MG, UNK
  8. NULYTELY [Concomitant]
     Dosage: 100/25 X 5
  9. MADOPAR [Concomitant]

REACTIONS (4)
  - CATATONIA [None]
  - ELECTROCONVULSIVE THERAPY [None]
  - INFECTION [None]
  - MALAISE [None]
